FAERS Safety Report 5127138-8 (Version None)
Quarter: 2006Q4

REPORT INFORMATION
  Report Type: 
  Country: None (occurrence: None)
  Receive Date: 20061013
  Receipt Date: 20061002
  Transmission Date: 20070319
  Serious: Yes (Other)
  Sender: FDA-Public Use
  Company Number: 2006AC01795

PATIENT
  Age: 55 Year
  Sex: Female

DRUGS (5)
  1. PROPOFOL [Suspect]
     Indication: COLONOSCOPY
  2. PROPOFOL [Suspect]
  3. PROPOFOL [Suspect]
  4. FENTANYL [Concomitant]
     Indication: COLONOSCOPY
  5. FENTANYL [Concomitant]

REACTIONS (16)
  - AGGRESSION [None]
  - ANTICHOLINERGIC SYNDROME [None]
  - ATRIOVENTRICULAR BLOCK FIRST DEGREE [None]
  - BLOOD LACTATE DEHYDROGENASE INCREASED [None]
  - BLOOD PRESSURE INCREASED [None]
  - DISORIENTATION [None]
  - HYPERREFLEXIA [None]
  - LOSS OF CONSCIOUSNESS [None]
  - MIOSIS [None]
  - MOANING [None]
  - MUSCLE RIGIDITY [None]
  - NYSTAGMUS [None]
  - PSYCHOMOTOR HYPERACTIVITY [None]
  - RESTLESSNESS [None]
  - SCREAMING [None]
  - SOMNOLENCE [None]
